FAERS Safety Report 8619591-X (Version None)
Quarter: 2012Q3

REPORT INFORMATION
  Report Type: 
  Country: None (occurrence: None)
  Receive Date: 20120824
  Receipt Date: 20120823
  Transmission Date: 20120928
  Serious: Yes (Hospitalization, Other)
  Sender: FDA-Public Use
  Company Number: PHHY2012AT058624

PATIENT
  Age: 74 Year
  Sex: Male
  Weight: 102 kg

DRUGS (8)
  1. SPA100A [Suspect]
     Dosage: 150/5 MG
     Dates: start: 20111011
  2. SPA100A [Suspect]
     Dosage: 300/5 MG
     Dates: start: 20111101, end: 20111109
  3. EBANTIL [Concomitant]
     Dosage: 60 MG, UNK
     Dates: start: 20000101
  4. SPIROBENE [Concomitant]
     Dosage: 50 MG, UNK
     Dates: start: 20050101
  5. EBANTIL [Concomitant]
     Dosage: 120 MG, UNK
  6. ITERIUM [Concomitant]
     Dosage: 1 MG, DAILY
     Dates: start: 20050101
  7. AQUAPHORIL [Concomitant]
     Dosage: UNK
     Dates: start: 20000101
  8. MOXONIBENE [Concomitant]
     Dosage: 0.4 MG, DAILY
     Dates: start: 20050101

REACTIONS (3)
  - PERIPHERAL ARTERIAL OCCLUSIVE DISEASE [None]
  - BLOOD PRESSURE INCREASED [None]
  - ULCER [None]
